FAERS Safety Report 6421502-2 (Version None)
Quarter: 2009Q4

REPORT INFORMATION
  Report Type: 
  Country: None (occurrence: None)
  Receive Date: 20091030
  Receipt Date: 20090903
  Transmission Date: 20100525
  Serious: No
  Sender: FDA-Public Use
  Company Number: US-TYCO HEALTHCARE/MALLINCKRODT-T200901641

PATIENT
  Sex: Male

DRUGS (4)
  1. OXYCODONE HCL EXTENDED-RELEASE [Suspect]
     Indication: PAIN
     Dosage: 80 MG 5X DAILY
     Dates: start: 20090824, end: 20090828
  2. OXYCODONE HCL EXTENDED-RELEASE [Suspect]
  3. OXYCODONE [Concomitant]
     Indication: BREAKTHROUGH PAIN
     Dosage: 5 MG, PRN
  4. KLONOPIN [Concomitant]

REACTIONS (5)
  - DRUG INEFFECTIVE [None]
  - INCORRECT DOSE ADMINISTERED [None]
  - INFLUENZA LIKE ILLNESS [None]
  - MALAISE [None]
  - WITHDRAWAL SYNDROME [None]
